FAERS Safety Report 7996706-8 (Version None)
Quarter: 2011Q4

REPORT INFORMATION
  Report Type: 
  Country: None (occurrence: None)
  Receive Date: 20111221
  Receipt Date: 20111208
  Transmission Date: 20120403
  Serious: Yes (Other)
  Sender: FDA-Public Use
  Company Number: US-ELI_LILLY_AND_COMPANY-US201112002997

PATIENT
  Sex: Female

DRUGS (1)
  1. FORTEO [Suspect]
     Route: 065

REACTIONS (4)
  - INFECTION [None]
  - SUICIDAL IDEATION [None]
  - HAEMATEMESIS [None]
  - DEPRESSED MOOD [None]
